FAERS Safety Report 5284861-2 (Version None)
Quarter: 2007Q2

REPORT INFORMATION
  Report Type: 
  Country: None (occurrence: None)
  Receive Date: 20070403
  Receipt Date: 20070323
  Transmission Date: 20071010
  Serious: Yes (Hospitalization)
  Sender: FDA-Public Use
  Company Number: FR-ROCHE-489483

PATIENT
  Age: 36 Year
  Sex: Male

DRUGS (5)
  1. ROCEPHIN [Suspect]
     Indication: NOCARDIOSIS
     Route: 030
     Dates: start: 20041116, end: 20050115
  2. ROCEPHIN [Suspect]
     Dosage: RE-INTRODUCED END OF JUNE 2006.
     Route: 030
     Dates: start: 20060625
  3. BACTRIM [Suspect]
     Indication: NOCARDIOSIS
     Route: 048
     Dates: start: 20041116, end: 20050115
  4. BACTRIM [Suspect]
     Route: 048
     Dates: start: 20060719
  5. VIBRAMYCINE [Concomitant]
     Indication: NOCARDIOSIS
     Route: 048
     Dates: start: 20041116, end: 20050415

REACTIONS (1)
  - STEVENS-JOHNSON SYNDROME [None]
